FAERS Safety Report 4341969-3 (Version None)
Quarter: 2004Q2

REPORT INFORMATION
  Report Type: 
  Country: None (occurrence: None)
  Receive Date: 20040415
  Receipt Date: 20040402
  Transmission Date: 20050107
  Serious: Yes (Disabling)
  Sender: FDA-Public Use
  Company Number: USA040360713

PATIENT
  Age: 59 Year
  Sex: Male

DRUGS (2)
  1. CIALIS [Suspect]
     Indication: ERECTILE DYSFUNCTION
     Dates: start: 20040211, end: 20040212
  2. CIALIS [Suspect]
     Indication: PROPHYLAXIS
     Dates: start: 20040211, end: 20040212

REACTIONS (6)
  - C-REACTIVE PROTEIN INCREASED [None]
  - DIZZINESS [None]
  - OPTIC ISCHAEMIC NEUROPATHY [None]
  - PLATELET COUNT INCREASED [None]
  - RED BLOOD CELL SEDIMENTATION RATE INCREASED [None]
  - SCOTOMA [None]
